FAERS Safety Report 24527801 (Version 1)
Quarter: 2024Q4

REPORT INFORMATION
  Report Type: Spontaneous
  Country: FR (occurrence: FR)
  Receive Date: 20241021
  Receipt Date: 20241021
  Transmission Date: 20250115
  Serious: Yes (Hospitalization, Other)
  Sender: AUROBINDO
  Company Number: FR-AFSSAPS-AVNT20220511

PATIENT
  Age: 85 Year
  Sex: Female

DRUGS (1)
  1. TRAMADOL [Suspect]
     Active Substance: TRAMADOL
     Indication: Product used for unknown indication
     Dosage: 200 MILLIGRAM, ONCE A DAY (IN 2 DOSES)
     Route: 048

REACTIONS (2)
  - Drug withdrawal syndrome [Unknown]
  - Drug use disorder [Not Recovered/Not Resolved]
